FAERS Safety Report 21073249 (Version 1)
Quarter: 2022Q3

REPORT INFORMATION
  Report Type: Spontaneous
  Country: FR (occurrence: FR)
  Receive Date: 20220712
  Receipt Date: 20220712
  Transmission Date: 20221026
  Serious: Yes (Hospitalization, Other)
  Sender: FDA-Public Use
  Company Number: FR-AMERICAN REGENT INC-2022001964

PATIENT
  Age: 32 Year
  Sex: Female
  Weight: 59.5 kg

DRUGS (1)
  1. FERINJECT [Suspect]
     Active Substance: FERRIC CARBOXYMALTOSE
     Indication: Anaemia
     Dosage: 1 GRAM
     Route: 042
     Dates: start: 20220321, end: 20220321

REACTIONS (3)
  - Maternal exposure during pregnancy [Unknown]
  - Bradycardia foetal [Recovered/Resolved]
  - Type I hypersensitivity [Recovered/Resolved]

NARRATIVE: CASE EVENT DATE: 20220321
